FAERS Safety Report 21192253 (Version 2)
Quarter: 2022Q3

REPORT INFORMATION
  Report Type: Spontaneous
  Country: US (occurrence: US)
  Receive Date: 20220809
  Receipt Date: 20220810
  Transmission Date: 20221026
  Serious: No
  Sender: FDA-Public Use
  Company Number: US-BIOVITRUM-2022US09260

PATIENT
  Age: 31 Year
  Sex: Male

DRUGS (3)
  1. KINERET [Suspect]
     Active Substance: ANAKINRA
     Indication: Rheumatoid arthritis
     Dates: start: 202207
  2. KINERET [Suspect]
     Active Substance: ANAKINRA
     Dates: start: 202207
  3. KINERET [Suspect]
     Active Substance: ANAKINRA

REACTIONS (8)
  - Dyspnoea [Unknown]
  - Hypotension [Unknown]
  - Vision blurred [Recovered/Resolved]
  - Nausea [Recovered/Resolved]
  - Vomiting [Unknown]
  - Fatigue [Recovered/Resolved]
  - Headache [Recovered/Resolved]
  - Off label use [Unknown]

NARRATIVE: CASE EVENT DATE: 20220701
